FAERS Safety Report 9646015 (Version 2)
Quarter: 2013Q4

REPORT INFORMATION
  Report Type: Spontaneous
  Country: US (occurrence: None)
  Receive Date: 20131023
  Receipt Date: 20131125
  Transmission Date: 20140711
  Serious: Yes (Other)
  Sender: FDA-Public Use
  Company Number: 2013-US-002049

PATIENT
  Age: 38 Year
  Sex: Female

DRUGS (12)
  1. XYREM [Suspect]
     Indication: NARCOLEPSY
     Route: 048
     Dates: start: 201309, end: 201310
  2. XYREM [Suspect]
     Indication: CATAPLEXY
     Route: 048
     Dates: start: 201309, end: 201310
  3. CENESTIN (ESTROGENS CONJUGATED) [Concomitant]
  4. LOTENSIN (BENAZEPRIL HYDROCHLORIDE) [Concomitant]
  5. VERAPAMIL (VERAPAMIL HYDROCHLORIDE) (VERAPAMIL HYDROCHLORIDE) [Concomitant]
  6. PLAQUENIL (HYDROXYCHLOROQUINE SULFATE) / ORAL / TABLET, FILM COATED / 200 MILLIGRAM(S) [Concomitant]
  7. TOPAMAX (TOPIRAMATE) [Concomitant]
  8. COLESTID (COLESTIPOL HYDROCHLORIDE) [Concomitant]
  9. ZOLOFT (SERTRALINE HYDROCHLORIDE) [Concomitant]
  10. NASACORT (TRIAMCINOLONE ACETONIDE) [Concomitant]
  11. CAMBIA (DICLOFENAC POTASSIUM) [Concomitant]
  12. NUVIGIL (ARMODAFINIL) [Concomitant]

REACTIONS (4)
  - Hypoaesthesia [None]
  - Lip disorder [None]
  - Abnormal sleep-related event [None]
  - Cataplexy [None]
